FAERS Safety Report 19964761 (Version 1)
Quarter: 2021Q4

REPORT INFORMATION
  Report Type: Spontaneous
  Country: US (occurrence: US)
  Receive Date: 20211018
  Receipt Date: 20211018
  Transmission Date: 20220303
  Serious: No
  Sender: FDA-Public Use
  Company Number: US-PFIZER INC-2021414713

PATIENT
  Age: 59 Year
  Sex: Female

DRUGS (1)
  1. XELJANZ [Suspect]
     Active Substance: TOFACITINIB CITRATE
     Indication: Colitis
     Dosage: 10 MG

REACTIONS (6)
  - Confusional state [Unknown]
  - Nervousness [Unknown]
  - Headache [Unknown]
  - Illness [Unknown]
  - Stress [Unknown]
  - Off label use [Unknown]
